FAERS Safety Report 10842474 (Version 1)
Quarter: 2015Q1

REPORT INFORMATION
  Report Type: Spontaneous
  Country: PT (occurrence: PT)
  Receive Date: 20150220
  Receipt Date: 20150220
  Transmission Date: 20150721
  Serious: Yes (Hospitalization, Other)
  Sender: FDA-Public Use
  Company Number: PT-JNJFOC-20150204380

PATIENT
  Age: 60 Year
  Sex: Male

DRUGS (6)
  1. HALDOL DECANOATE [Suspect]
     Active Substance: HALOPERIDOL DECANOATE
     Indication: PRODUCT USED FOR UNKNOWN INDICATION
     Route: 030
  2. ARTANE [Concomitant]
     Active Substance: TRIHEXYPHENIDYL HYDROCHLORIDE
     Route: 065
  3. LORENIN [Concomitant]
     Active Substance: LORAZEPAM
     Route: 065
  4. XEPLION [Suspect]
     Active Substance: PALIPERIDONE PALMITATE
     Indication: DELUSIONAL DISORDER, UNSPECIFIED TYPE
     Route: 030
  5. XEPLION [Suspect]
     Active Substance: PALIPERIDONE PALMITATE
     Indication: AUTISM
     Route: 030
  6. DIPLEXIL [Concomitant]
     Route: 065

REACTIONS (3)
  - Extrapyramidal disorder [Recovering/Resolving]
  - Muscle rigidity [Recovering/Resolving]
  - Delirium [Recovering/Resolving]
